FAERS Safety Report 16306029 (Version 1)
Quarter: 2019Q2

REPORT INFORMATION
  Report Type: Spontaneous
  Country: FR (occurrence: FR)
  Receive Date: 20190513
  Receipt Date: 20190513
  Transmission Date: 20190711
  Serious: Yes (Hospitalization)
  Sender: FDA-Public Use
  Company Number: FR-MYLANLABS-2019M1044309

PATIENT
  Age: 68 Year
  Sex: Male
  Weight: 155 kg

DRUGS (10)
  1. TADENAN [Concomitant]
     Active Substance: PYGEUM
     Dosage: UNK
     Route: 048
  2. BISOPROLOL [Concomitant]
     Active Substance: BISOPROLOL
     Dosage: 2.5 MILLIGRAM, QD
     Route: 048
  3. SILODYX [Concomitant]
     Active Substance: SILODOSIN
     Dosage: UNK
     Route: 048
  4. ALLOPURINOL. [Concomitant]
     Active Substance: ALLOPURINOL
     Dosage: UNK
     Route: 048
  5. LERCAPRESSECOMB [Concomitant]
     Dosage: 1 DOSAGE FORM, QD
     Route: 048
  6. BIPROFENID [Concomitant]
     Active Substance: KETOPROFEN
     Dosage: UNK
  7. METFORMIN [Suspect]
     Active Substance: METFORMIN HYDROCHLORIDE
     Indication: TYPE 2 DIABETES MELLITUS
     Dosage: 2550 MILLIGRAM, QD
     Route: 048
     Dates: end: 20171222
  8. EFFERALGAN [Concomitant]
     Active Substance: ACETAMINOPHEN
     Route: 048
  9. ALPRESS LP [Concomitant]
     Active Substance: PRAZOSIN HYDROCHLORIDE
     Dosage: 2.5 MILLIGRAM, QD
     Route: 048
  10. AVODART [Concomitant]
     Active Substance: DUTASTERIDE
     Dosage: UNK

REACTIONS (2)
  - Lactic acidosis [Recovered/Resolved]
  - Acute kidney injury [Recovered/Resolved]

NARRATIVE: CASE EVENT DATE: 20171221
